FAERS Safety Report 20661789 (Version 6)
Quarter: 2022Q4

REPORT INFORMATION
  Report Type: Spontaneous
  Country: GB (occurrence: GB)
  Receive Date: 20220401
  Receipt Date: 20221124
  Transmission Date: 20230112
  Serious: Yes (Life-Threatening, Hospitalization, Disabling, Other)
  Sender: FDA-Public Use
  Company Number: None

PATIENT
  Age: 31 Year
  Sex: Female
  Weight: 63.5 kg

DRUGS (66)
  1. OMEPRAZOLE [Suspect]
     Active Substance: OMEPRAZOLE
     Indication: Dyspepsia
     Dosage: 20 MILLIGRAM, QD (CAPSULE)
     Route: 048
     Dates: start: 20110525
  2. OMEPRAZOLE [Suspect]
     Active Substance: OMEPRAZOLE
     Dosage: 20 MILLIGRAM, QD (CAPSULE)
     Route: 048
  3. QUETIAPINE FUMARATE [Suspect]
     Active Substance: QUETIAPINE FUMARATE
     Indication: Psychotic disorder
     Dosage: UNK
     Route: 048
     Dates: start: 19990801, end: 20110706
  4. QUETIAPINE FUMARATE [Suspect]
     Active Substance: QUETIAPINE FUMARATE
     Dosage: 300 MILLIGRAM (FILM-COATED TABLET)
     Route: 048
     Dates: start: 20110224, end: 20110506
  5. AMITRIPTYLINE [Suspect]
     Active Substance: AMITRIPTYLINE
     Indication: Muscle spasms
     Dosage: 25 MG AT NIGHT TABLET (UNCOATED, ORAL)
     Route: 048
     Dates: start: 20110810
  6. AMITRIPTYLINE [Suspect]
     Active Substance: AMITRIPTYLINE
     Indication: Serotonin syndrome
     Dosage: UNK (AT NIGHT) (UNCOATED)
     Route: 048
  7. AMITRIPTYLINE [Suspect]
     Active Substance: AMITRIPTYLINE
     Indication: Neuralgia
     Dosage: UNK (UNCOATED)
     Route: 048
  8. AMITRIPTYLINE [Suspect]
     Active Substance: AMITRIPTYLINE
     Indication: Neuralgia
  9. AMITRIPTYLINE [Suspect]
     Active Substance: AMITRIPTYLINE
     Indication: Drug withdrawal syndrome
  10. CLONAZEPAM [Suspect]
     Active Substance: CLONAZEPAM
     Indication: Sedation
     Dosage: UNSURE (UNCOATED)
     Route: 048
     Dates: start: 20110224, end: 20110410
  11. CLONAZEPAM [Suspect]
     Active Substance: CLONAZEPAM
     Dosage: UNSURE (UNCOATED) EAR GEL
     Route: 048
     Dates: end: 20110410
  12. CODEINE PHOSPHATE [Suspect]
     Active Substance: CODEINE PHOSPHATE
     Indication: Serotonin syndrome
     Dosage: 30 MILLIGRAM, QID (UNCOATED)
     Route: 048
     Dates: start: 2002, end: 2002
  13. CODEINE PHOSPHATE [Suspect]
     Active Substance: CODEINE PHOSPHATE
     Indication: Analgesic therapy
     Dosage: 30 MILLIGRAM, QID (UNCOATED)
     Route: 048
     Dates: start: 2008, end: 2008
  14. CODEINE PHOSPHATE [Suspect]
     Active Substance: CODEINE PHOSPHATE
     Dosage: 15-30 MG (EVERY 24 HOUR) (UNCOATED)
     Route: 048
     Dates: start: 20110615, end: 20110723
  15. CODEINE PHOSPHATE [Suspect]
     Active Substance: CODEINE PHOSPHATE
     Dosage: UNK (UNCOATED)
     Route: 048
     Dates: start: 20110224, end: 20110410
  16. CODEINE PHOSPHATE [Suspect]
     Active Substance: CODEINE PHOSPHATE
     Dosage: 24 - EVERY HOUR
     Route: 048
     Dates: start: 20110615, end: 20110723
  17. CODEINE PHOSPHATE [Suspect]
     Active Substance: CODEINE PHOSPHATE
     Dosage: UNK
     Route: 065
  18. DIAZEPAM [Suspect]
     Active Substance: DIAZEPAM
     Indication: Muscle spasms
     Dosage: 8 MILLIGRAM  (EVERY 24 HOURS) (UNCOATED, ORAL)
     Route: 048
     Dates: start: 20110725
  19. DIAZEPAM [Suspect]
     Active Substance: DIAZEPAM
     Indication: Serotonin syndrome
     Dosage: 20 MG, QD 5 MILLIGRAM, QID (5 MG QDS AND NOW ON 2-2-4 MG)
     Route: 048
     Dates: start: 20110725
  20. DIAZEPAM [Suspect]
     Active Substance: DIAZEPAM
     Dosage: 5 MILLIGRAM (20 MG, QD 5 MILLIGRAM, QID (5 MG QDS AND NOW) (UNCOATED, ORAL)
     Route: 048
     Dates: start: 20110725
  21. DIAZEPAM [Suspect]
     Active Substance: DIAZEPAM
     Dosage: 8 MILLIGRAM, QD
     Route: 065
  22. DIAZEPAM [Suspect]
     Active Substance: DIAZEPAM
     Dosage: UNK  (UNCOATED)
     Route: 048
     Dates: start: 20110725
  23. DOMPERIDONE [Suspect]
     Active Substance: DOMPERIDONE
     Indication: Product used for unknown indication
     Dosage: UNK (UNCOATED)
     Route: 048
  24. DOMPERIDONE [Suspect]
     Active Substance: DOMPERIDONE
     Dosage: UNK (UNCOATED)
     Route: 048
  25. DOMPERIDONE [Suspect]
     Active Substance: DOMPERIDONE
     Dosage: UNK (UNCOATED)
     Route: 048
  26. LORAZEPAM [Suspect]
     Active Substance: LORAZEPAM
     Indication: Sedation
     Dosage: 1 MILLIGRAM, QD (UNCOATED ORAL)
     Route: 048
     Dates: start: 20110725
  27. LORAZEPAM [Suspect]
     Active Substance: LORAZEPAM
     Dosage: 1 MILLIGRAM, QID (UNCOATED ORAL)
     Route: 048
     Dates: start: 20110224, end: 20110410
  28. LORAZEPAM [Suspect]
     Active Substance: LORAZEPAM
     Dosage: 1 MILLIGRAM, QID (UNCOATED, ORAL)
     Route: 048
     Dates: start: 20110523, end: 20110627
  29. LORAZEPAM [Suspect]
     Active Substance: LORAZEPAM
     Dosage: 4 MILLGRAM, QID  (UNCOATED, ORAL)
     Route: 048
     Dates: start: 20110202, end: 20110410
  30. MIRTAZAPINE [Suspect]
     Active Substance: MIRTAZAPINE
     Indication: Depression
     Dosage: 30 MILLIGRAM, QD (UNCOATED, ORAL)
     Route: 048
     Dates: start: 20101007, end: 20101012
  31. MIRTAZAPINE [Suspect]
     Active Substance: MIRTAZAPINE
     Dosage: 30 MILLIGRAM, QD (UNSURE, UNCOATED, ORAL)
     Route: 048
     Dates: start: 20100923, end: 20101108
  32. MIRTAZAPINE [Suspect]
     Active Substance: MIRTAZAPINE
     Dosage: 30MG IN THE DAY AND 15MG AT NIGHT (UNCOATED, ORAL)
     Route: 048
     Dates: start: 20110224, end: 20110506
  33. MIRTAZAPINE [Suspect]
     Active Substance: MIRTAZAPINE
     Dosage: 30 MILLIGRAM, QD
     Route: 048
  34. PAROXETINE [Suspect]
     Active Substance: PAROXETINE
     Indication: Depression
     Dosage: UNK
     Route: 048
     Dates: start: 1996, end: 201105
  35. PAROXETINE [Suspect]
     Active Substance: PAROXETINE
     Indication: Post-traumatic stress disorder
     Dosage: 60 MILLIGRAM
     Route: 048
     Dates: start: 19990801, end: 201105
  36. PAROXETINE [Suspect]
     Active Substance: PAROXETINE
     Dosage: 20 MILLIGRAM, TID
     Route: 048
     Dates: start: 199908, end: 201105
  37. PAROXETINE [Suspect]
     Active Substance: PAROXETINE
     Dosage: 40 MILLIGRAM
     Route: 048
     Dates: start: 19990801, end: 20110706
  38. PAROXETINE [Suspect]
     Active Substance: PAROXETINE
     Dosage: 40 MILLIGRAM
     Route: 048
     Dates: start: 201105, end: 20110706
  39. PAROXETINE [Suspect]
     Active Substance: PAROXETINE
     Dosage: 20 MILLIGRAM, TID (THREE TIMES A DAY)
     Route: 048
     Dates: start: 201105, end: 20110706
  40. PHOSPHORUS [Suspect]
     Active Substance: PHOSPHORUS
     Indication: Product used for unknown indication
     Dosage: UNK
     Route: 065
  41. PROCYCLIDINE HYDROCHLORIDE [Suspect]
     Active Substance: PROCYCLIDINE HYDROCHLORIDE
     Indication: Oculogyric crisis
     Dosage: 5 MILLIGRAM, QD
     Route: 048
     Dates: start: 1995, end: 1995
  42. PROCYCLIDINE HYDROCHLORIDE [Suspect]
     Active Substance: PROCYCLIDINE HYDROCHLORIDE
     Indication: Extrapyramidal disorder
     Dosage: 5 MILLIGRAM, QD
     Route: 048
     Dates: start: 1995, end: 1995
  43. PROCYCLIDINE HYDROCHLORIDE [Suspect]
     Active Substance: PROCYCLIDINE HYDROCHLORIDE
     Dosage: 15 MILLIGRAM, TID
     Route: 048
     Dates: start: 20110503, end: 20110510
  44. PROCYCLIDINE HYDROCHLORIDE [Suspect]
     Active Substance: PROCYCLIDINE HYDROCHLORIDE
     Dosage: 20 MILLIGRAM, QD
     Route: 048
     Dates: start: 20110324, end: 20110506
  45. PROCYCLIDINE HYDROCHLORIDE [Suspect]
     Active Substance: PROCYCLIDINE HYDROCHLORIDE
     Dosage: 20 MILLIGRAM, QD (IN1ST TRIMESTER)
     Route: 048
     Dates: start: 20110415
  46. PROCYCLIDINE HYDROCHLORIDE [Suspect]
     Active Substance: PROCYCLIDINE HYDROCHLORIDE
     Dosage: 5 MILLIGRAM
     Route: 048
     Dates: start: 20110503, end: 20110510
  47. PAROXETINE HYDROCHLORIDE [Suspect]
     Active Substance: PAROXETINE HYDROCHLORIDE
     Indication: Depression
     Dosage: 20 MILLIGRAM
     Route: 048
     Dates: start: 1997
  48. PAROXETINE HYDROCHLORIDE [Suspect]
     Active Substance: PAROXETINE HYDROCHLORIDE
     Dosage: 60 MILLIGRAM, QD
     Route: 048
     Dates: start: 1997, end: 201105
  49. PAROXETINE HYDROCHLORIDE [Suspect]
     Active Substance: PAROXETINE HYDROCHLORIDE
     Dosage: UNK (TABLET, UNCOATED)
     Route: 048
     Dates: start: 1999
  50. PAROXETINE HYDROCHLORIDE [Suspect]
     Active Substance: PAROXETINE HYDROCHLORIDE
     Dosage: 20 MILLIGRAM, TID
     Route: 048
     Dates: start: 19990801, end: 201105
  51. PAROXETINE HYDROCHLORIDE [Suspect]
     Active Substance: PAROXETINE HYDROCHLORIDE
     Dosage: 1 DOSAGE FORM (UNCOATED)
     Route: 048
     Dates: start: 200812, end: 20101210
  52. PAROXETINE HYDROCHLORIDE [Suspect]
     Active Substance: PAROXETINE HYDROCHLORIDE
     Dosage: UNK (UNCOATED)
     Route: 048
     Dates: start: 201012
  53. PAROXETINE HYDROCHLORIDE [Suspect]
     Active Substance: PAROXETINE HYDROCHLORIDE
     Dosage: 40 MILLIGRAM, QD
     Route: 048
     Dates: start: 201105, end: 20110706
  54. PAROXETINE HYDROCHLORIDE [Suspect]
     Active Substance: PAROXETINE HYDROCHLORIDE
     Dosage: 20 MG, BID
     Route: 048
     Dates: start: 2011, end: 20110706
  55. PAROXETINE HYDROCHLORIDE [Suspect]
     Active Substance: PAROXETINE HYDROCHLORIDE
     Dosage: UNK (INTERRUPTED) (UNCOATED)
     Route: 048
     Dates: start: 201105, end: 20110706
  56. TRAMADOL [Suspect]
     Active Substance: TRAMADOL
     Indication: Neck pain
     Dosage: 4 MILLIGRAM, QD ONCE PER DAY (4 CYCLICAL, QD 50-100 MG QD)
     Route: 048
     Dates: start: 20081201, end: 20101210
  57. TRAMADOL [Suspect]
     Active Substance: TRAMADOL
     Indication: Back pain
     Dosage: DISCONTINUED AFTER 4 OR 5 DAYS
     Route: 048
     Dates: start: 20081201, end: 20101210
  58. TRAMADOL [Suspect]
     Active Substance: TRAMADOL
     Indication: Analgesic therapy
     Dosage: 100 MILLIGRAM, QD (ONCE PER DAY)
     Route: 048
     Dates: start: 20081201, end: 20101210
  59. TRAMADOL [Suspect]
     Active Substance: TRAMADOL
     Indication: Pain
     Dosage: UNK
     Route: 044
     Dates: start: 20081208, end: 20101210
  60. TRAMADOL [Suspect]
     Active Substance: TRAMADOL
     Dosage: 4 CYCLICAL QD;
     Route: 048
     Dates: start: 20080722
  61. TRAMADOL [Suspect]
     Active Substance: TRAMADOL
     Dosage: 5 MILLIGRAM
     Route: 044
     Dates: start: 1995, end: 1996
  62. TRAMADOL [Suspect]
     Active Substance: TRAMADOL
     Dosage: 8 MILLIGRAM
     Route: 065
     Dates: start: 20110725
  63. TRAMADOL [Suspect]
     Active Substance: TRAMADOL
     Dosage: 4 DOSAGE FORM
     Route: 048
  64. TRAMADOL [Suspect]
     Active Substance: TRAMADOL
     Dosage: 20 MILLIGRAM
     Route: 065
     Dates: start: 20110725
  65. TRAMADOL [Suspect]
     Active Substance: TRAMADOL
     Dosage: 1 DOSAGE FORM
     Route: 065
     Dates: start: 20110725
  66. TRAMADOL [Suspect]
     Active Substance: TRAMADOL
     Dosage: UNK, (4 UNK, QD)
     Route: 065
     Dates: start: 2008, end: 2009

REACTIONS (99)
  - Agitation [Unknown]
  - Anxiety [Unknown]
  - Aphasia [Not Recovered/Not Resolved]
  - Arthralgia [Unknown]
  - Asthenia [Unknown]
  - Balance disorder [Unknown]
  - Blood sodium decreased [Unknown]
  - Cogwheel rigidity [Unknown]
  - Confusional state [Not Recovered/Not Resolved]
  - Contusion [Unknown]
  - Contusion [Not Recovered/Not Resolved]
  - Cyanosis [Unknown]
  - Derealisation [Not Recovered/Not Resolved]
  - Delirium [Unknown]
  - Depression [Unknown]
  - Decreased appetite [Unknown]
  - Depersonalisation/derealisation disorder [Not Recovered/Not Resolved]
  - Disorientation [Not Recovered/Not Resolved]
  - Diarrhoea [Unknown]
  - Dissociation [Not Recovered/Not Resolved]
  - Disturbance in attention [Unknown]
  - Dissociation [Not Recovered/Not Resolved]
  - Dizziness [Unknown]
  - Dizziness [Unknown]
  - Drooling [Unknown]
  - Drug interaction [Unknown]
  - Drug ineffective [Unknown]
  - Drug withdrawal syndrome [Unknown]
  - Dystonia [Unknown]
  - Dyspnoea [Unknown]
  - Dyskinesia [Unknown]
  - Eye pain [Unknown]
  - Exposure during pregnancy [Unknown]
  - Emotional disorder [Unknown]
  - Feeling of body temperature change [Unknown]
  - Fatigue [Not Recovered/Not Resolved]
  - Feeling of despair [Unknown]
  - Feeling jittery [Unknown]
  - Gait disturbance [Unknown]
  - Gastric pH decreased [Unknown]
  - Hypoaesthesia [Not Recovered/Not Resolved]
  - Hypoaesthesia oral [Unknown]
  - Headache [Unknown]
  - Hyperhidrosis [Unknown]
  - H1N1 influenza [Unknown]
  - Heart rate increased [Unknown]
  - Hallucinations, mixed [Unknown]
  - Hallucination [Unknown]
  - Incontinence [Not Recovered/Not Resolved]
  - Illness [Unknown]
  - Limb injury [Unknown]
  - Mania [Unknown]
  - Mood swings [Unknown]
  - Maternal exposure during pregnancy [Unknown]
  - Menstrual disorder [Unknown]
  - Muscle disorder [Unknown]
  - Muscle spasms [Not Recovered/Not Resolved]
  - Muscle rigidity [Unknown]
  - Musculoskeletal stiffness [Not Recovered/Not Resolved]
  - Musculoskeletal stiffness [Unknown]
  - Mydriasis [Unknown]
  - Nightmare [Unknown]
  - Neuroleptic malignant syndrome [Unknown]
  - Off label use [Unknown]
  - Paralysis [Unknown]
  - Paralysis [Unknown]
  - Parosmia [Unknown]
  - Premature labour [Unknown]
  - Premature labour [Unknown]
  - Paraesthesia [Unknown]
  - Pallor [Unknown]
  - Psychotic disorder [Recovered/Resolved]
  - Pyrexia [Unknown]
  - Pruritus [Unknown]
  - Restless legs syndrome [Not Recovered/Not Resolved]
  - Restlessness [Unknown]
  - Schizophrenia [Unknown]
  - Seizure [Unknown]
  - Sensory loss [Unknown]
  - Serotonin syndrome [Not Recovered/Not Resolved]
  - Skin discolouration [Not Recovered/Not Resolved]
  - Sleep disorder [Unknown]
  - Somnolence [Not Recovered/Not Resolved]
  - Speech disorder [Unknown]
  - Suicidal ideation [Not Recovered/Not Resolved]
  - Swelling face [Unknown]
  - Swollen tongue [Unknown]
  - Tachycardia [Unknown]
  - Tremor [Not Recovered/Not Resolved]
  - Tinnitus [Unknown]
  - Therapeutic product ineffective [Unknown]
  - Toxicity to various agents [Unknown]
  - Urinary retention [Unknown]
  - Vision blurred [Unknown]
  - Visual impairment [Unknown]
  - Visual impairment [Unknown]
  - Vomiting [Unknown]
  - Drug ineffective [Unknown]
  - Eye pain [Unknown]

NARRATIVE: CASE EVENT DATE: 20030101
